FAERS Safety Report 7532881-7 (Version None)
Quarter: 2011Q2

REPORT INFORMATION
  Report Type: 
  Country: None (occurrence: None)
  Receive Date: 20110608
  Receipt Date: 20110603
  Transmission Date: 20111010
  Serious: Yes (Hospitalization, Other)
  Sender: FDA-Public Use
  Company Number: US-PFIZER INC-2011038390

PATIENT
  Sex: Female

DRUGS (20)
  1. CHANTIX [Suspect]
     Indication: SMOKING CESSATION THERAPY
     Dosage: STARTER AND CONTINUING PACKS
     Dates: start: 20070409
  2. CHANTIX [Suspect]
     Dosage: STARTER AND CONTINUING PACKS
     Dates: start: 20080131
  3. CHANTIX [Suspect]
     Dosage: STARTER AND CONTINUING PACKS
     Dates: start: 20080806
  4. ABILIFY [Concomitant]
     Indication: SCHIZOAFFECTIVE DISORDER
     Dosage: UNK
     Dates: start: 20060101, end: 20100101
  5. NEXIUM [Concomitant]
  6. HALDOL [Concomitant]
     Indication: SCHIZOAFFECTIVE DISORDER
     Dosage: UNK
     Dates: end: 20090101
  7. NEXIUM [Concomitant]
     Indication: GASTROOESOPHAGEAL REFLUX DISEASE
     Dosage: UNK
     Dates: start: 20060101, end: 20100101
  8. METHADOSE [Concomitant]
     Indication: PAIN
     Dosage: UNK
     Dates: start: 20060101, end: 20080101
  9. HALOPERIDOL [Concomitant]
     Indication: PSYCHOTIC DISORDER
     Dosage: UNK
     Dates: start: 20060101, end: 20090101
  10. CHANTIX [Suspect]
     Dosage: STARTER AND CONTINUING PACKS
     Dates: start: 20090106
  11. CHANTIX [Suspect]
     Dosage: STARTER AND CONTINUING PACKS
     Dates: start: 20090925, end: 20101013
  12. HYDROXYCHLOROQUINE [Concomitant]
     Indication: ARTHRITIS
     Dosage: UNK
     Dates: start: 20060101, end: 20100101
  13. ABILIFY [Concomitant]
     Indication: HALLUCINATION
  14. ABILIFY [Concomitant]
     Indication: PERSONALITY DISORDER
  15. LISINOPRIL [Concomitant]
     Indication: BLOOD PRESSURE
     Dosage: UNK
     Dates: start: 20060101, end: 20100101
  16. ZYRTEC [Concomitant]
     Indication: HYPERSENSITIVITY
     Dosage: UNK
     Dates: start: 20060101, end: 20100101
  17. HALDOL [Concomitant]
     Indication: PERSONALITY DISORDER
  18. CHANTIX [Suspect]
     Dosage: STARTER AND CONTINUING PACKS
     Dates: start: 20090720
  19. ABILIFY [Concomitant]
     Indication: DEPRESSION
  20. HALDOL [Concomitant]
     Indication: HALLUCINATION

REACTIONS (11)
  - SCHIZOAFFECTIVE DISORDER [None]
  - DEPRESSION [None]
  - PARANOIA [None]
  - ABNORMAL DREAMS [None]
  - SUICIDAL BEHAVIOUR [None]
  - HALLUCINATION [None]
  - INSOMNIA [None]
  - ROAD TRAFFIC ACCIDENT [None]
  - ANXIETY [None]
  - SYNCOPE [None]
  - JOINT DISLOCATION [None]
